FAERS Safety Report 5926412-2 (Version None)
Quarter: 2008Q4

REPORT INFORMATION
  Report Type: 
  Country: None (occurrence: None)
  Receive Date: 20081017
  Receipt Date: 20081009
  Transmission Date: 20090506
  Serious: Yes (Hospitalization)
  Sender: FDA-Public Use
  Company Number: GXKR2008DK09744

PATIENT
  Age: 30 Year
  Sex: Female
  Weight: 65 kg

DRUGS (1)
  1. VIBRADOX (NGX) (DOXYCYCLINE) TABLET, 100MG [Suspect]
     Indication: BORRELIA INFECTION
     Dosage: 300 MG DAILY ORAL
     Route: 048
     Dates: start: 19800730, end: 19800809

REACTIONS (3)
  - ASTHENIA [None]
  - BEDRIDDEN [None]
  - DEPRESSIVE SYMPTOM [None]
